FAERS Safety Report 13807208 (Version 1)
Quarter: 2017Q3

REPORT INFORMATION
  Report Type: Spontaneous
  Country: US (occurrence: US)
  Receive Date: 20170728
  Receipt Date: 20170728
  Transmission Date: 20171127
  Serious: No
  Sender: FDA-Public Use
  Company Number: US-PFIZER INC-2017321933

PATIENT
  Sex: Female

DRUGS (4)
  1. GABAPENTIN. [Suspect]
     Active Substance: GABAPENTIN
     Dosage: 600 MG, 3X/DAY
  2. ENALAPRIL MALEATE. [Suspect]
     Active Substance: ENALAPRIL MALEATE
     Dosage: 10 MG, DAILY
  3. METOPROLOL. [Suspect]
     Active Substance: METOPROLOL
     Dosage: 50 MG, 2X/DAY
  4. DEPO-MEDROL [Suspect]
     Active Substance: METHYLPREDNISOLONE ACETATE
     Dosage: 160 MG, UNK (ONE TIME DOSE)

REACTIONS (29)
  - Discomfort [Unknown]
  - Dysphonia [Unknown]
  - Micturition urgency [Unknown]
  - Joint swelling [Unknown]
  - Skin discolouration [Unknown]
  - Paraesthesia [Unknown]
  - Dry skin [Unknown]
  - Insomnia [Unknown]
  - Hypoaesthesia [Unknown]
  - Condition aggravated [Unknown]
  - Tenderness [Unknown]
  - Photosensitivity reaction [Unknown]
  - Erythema [Unknown]
  - Periorbital oedema [Unknown]
  - Temperature intolerance [Unknown]
  - Arthralgia [Unknown]
  - Back pain [Unknown]
  - Pain [Unknown]
  - Butterfly rash [Unknown]
  - Musculoskeletal stiffness [Unknown]
  - Joint stiffness [Unknown]
  - Dry eye [Unknown]
  - Lacrimal gland enlargement [Unknown]
  - Dry mouth [Unknown]
  - Depressed mood [Unknown]
  - Fatigue [Unknown]
  - Increased tendency to bruise [Unknown]
  - Raynaud^s phenomenon [Unknown]
  - Anxiety [Unknown]
